FAERS Safety Report 24627549 (Version 3)
Quarter: 2024Q4

REPORT INFORMATION
  Report Type: Spontaneous
  Country: SK (occurrence: SK)
  Receive Date: 20241116
  Receipt Date: 20241204
  Transmission Date: 20250114
  Serious: Yes (Death, Other)
  Sender: IPSEN BIOPHARMACEUTICALS, INC.
  Company Number: SK-IPSEN Group, Research and Development-2024-23341

PATIENT
  Age: 55 Year
  Sex: Male

DRUGS (4)
  1. LANREOTIDE ACETATE [Suspect]
     Active Substance: LANREOTIDE ACETATE
     Indication: Neuroendocrine tumour
     Route: 058
     Dates: start: 201911, end: 20231109
  2. ZOLEDRONIC ACID [Concomitant]
     Active Substance: ZOLEDRONIC ACID
  3. EVEROLIMUS [Concomitant]
     Active Substance: EVEROLIMUS
     Dates: start: 202106, end: 202305
  4. OCTREOTIDE [Concomitant]
     Active Substance: OCTREOTIDE
     Route: 058
     Dates: start: 202302

REACTIONS (6)
  - Embolism [Fatal]
  - Thrombosis [Unknown]
  - Malignant neoplasm progression [Unknown]
  - COVID-19 [Unknown]
  - General physical health deterioration [Unknown]
  - Subileus [Unknown]

NARRATIVE: CASE EVENT DATE: 20210101
